FAERS Safety Report 8890814 (Version 1)
Quarter: 2012Q4

REPORT INFORMATION
  Report Type: 
  Country: AU (occurrence: AU)
  Receive Date: 20121107
  Receipt Date: 20121107
  Transmission Date: 20130627
  Serious: Yes (Other)
  Sender: FDA-Public Use
  Company Number: AU-GILEAD-2012-0064168

PATIENT
  Age: 34 Year
  Sex: Male

DRUGS (2)
  1. ATRIPLA [Suspect]
     Indication: HIV INFECTION
     Dosage: 1 DF, QD
     Dates: start: 200902
  2. XENICAL [Suspect]
     Indication: WEIGHT INCREASED
     Dosage: UNK
     Dates: start: 201009, end: 201012

REACTIONS (3)
  - Drug interaction [Recovered/Resolved]
  - Disease recurrence [Recovered/Resolved]
  - Viraemia [Recovered/Resolved]
